FAERS Safety Report 10515655 (Version 1)
Quarter: 2014Q4

REPORT INFORMATION
  Report Type: Spontaneous
  Country: US (occurrence: US)
  Receive Date: 20141014
  Receipt Date: 20141014
  Transmission Date: 20150528
  Serious: Yes (Other)
  Sender: FDA-Public Use
  Company Number: US-ASTELLAS-2014US014534

PATIENT
  Sex: Male

DRUGS (2)
  1. XTANDI [Suspect]
     Active Substance: ENZALUTAMIDE
     Indication: PROSTATE CANCER
     Dosage: UNK UNK, UNKNOWN FREQ.
     Route: 065
     Dates: end: 2014
  2. XTANDI [Suspect]
     Active Substance: ENZALUTAMIDE
     Dosage: UNK, UNKNOWN FREQ.
     Route: 065
     Dates: start: 2014

REACTIONS (13)
  - Fall [Unknown]
  - Dementia [Unknown]
  - Productive cough [Not Recovered/Not Resolved]
  - Brain injury [Unknown]
  - Dysphagia [Recovered/Resolved]
  - Balance disorder [Unknown]
  - Cough [Not Recovered/Not Resolved]
  - Asthenia [Unknown]
  - Gastrointestinal disorder [Unknown]
  - Back pain [Unknown]
  - Choking [Not Recovered/Not Resolved]
  - Fatigue [Unknown]
  - Product size issue [Unknown]

NARRATIVE: CASE EVENT DATE: 2014
